FAERS Safety Report 23941209 (Version 1)
Quarter: 2024Q2

REPORT INFORMATION
  Report Type: Spontaneous
  Country: US (occurrence: None)
  Receive Date: 20240604
  Receipt Date: 20240604
  Transmission Date: 20240716
  Serious: Yes (Disabling)
  Sender: FDA-Public Use
  Company Number: None

PATIENT
  Age: 44 Year
  Sex: Male
  Weight: 81 kg

DRUGS (1)
  1. .DELTA.9-TETRAHYDROCANNABINOL\HERBALS [Suspect]
     Active Substance: .DELTA.9-TETRAHYDROCANNABINOL\HERBALS
     Indication: Nausea
     Dosage: OTHER QUANTITY : 1 GUMMY?FREQUENCY : 3 TIMES A DAY?
     Route: 048
     Dates: start: 20240214, end: 20240221

REACTIONS (1)
  - Mouth ulceration [None]

NARRATIVE: CASE EVENT DATE: 20240214
